FAERS Safety Report 8714773 (Version 2)
Quarter: 2014Q1

REPORT INFORMATION
  Report Type: Spontaneous
  Country: US (occurrence: US)
  Receive Date: 20120809
  Receipt Date: 20140224
  Transmission Date: 20141002
  Serious: Yes (Death, Hospitalization)
  Sender: FDA-Public Use
  Company Number: US-PFIZER INC-2011270761

PATIENT
  Age: 53 Year
  Sex: Male

DRUGS (6)
  1. DILTIAZEM HCL [Suspect]
     Dosage: 3600 MG, UNK
     Route: 065
  2. PROPANOLOL HCL [Suspect]
     Dosage: 1200 MG, UNK
     Route: 065
  3. WARFARIN [Concomitant]
     Dosage: UNK
  4. LORAZEPAM [Concomitant]
     Dosage: UNK
  5. OLMESARTAN [Concomitant]
  6. FLUOXETINE [Concomitant]
     Dosage: UNK

REACTIONS (6)
  - Overdose [Fatal]
  - Multi-organ failure [Fatal]
  - Cardiac arrest [Fatal]
  - Cardiogenic shock [Unknown]
  - Hypotension [Unknown]
  - Bradycardia [Unknown]
